FAERS Safety Report 17636304 (Version 3)
Quarter: 2020Q2

REPORT INFORMATION
  Report Type: Spontaneous
  Country: US (occurrence: US)
  Receive Date: 20200407
  Receipt Date: 20200505
  Transmission Date: 20200713
  Serious: No
  Sender: FDA-Public Use
  Company Number: US-GW PHARMA-202003USGW01321

PATIENT

DRUGS (3)
  1. EPIDIOLEX [Suspect]
     Active Substance: CANNABIDIOL
     Indication: LENNOX-GASTAUT SYNDROME
     Dosage: 5.24 MG/KG 100 MILLIGRAM, BID
     Route: 048
     Dates: start: 20190830, end: 20200213
  2. EPIDIOLEX [Interacting]
     Active Substance: CANNABIDIOL
     Dosage: 3.64 MG/KG 70 MILLIGRAM, BID
     Route: 048
     Dates: start: 20200214
  3. ONFI [Interacting]
     Active Substance: CLOBAZAM
     Indication: PRODUCT USED FOR UNKNOWN INDICATION
     Dosage: UNK
     Route: 065

REACTIONS (4)
  - Acne [Unknown]
  - Drug interaction [Unknown]
  - Somnolence [Unknown]
  - Rash [Recovered/Resolved]

NARRATIVE: CASE EVENT DATE: 202004
